FAERS Safety Report 8537191-7 (Version None)
Quarter: 2012Q3

REPORT INFORMATION
  Report Type: 
  Country: None (occurrence: None)
  Receive Date: 20120725
  Receipt Date: 20120716
  Transmission Date: 20120928
  Serious: Yes (Death)
  Sender: FDA-Public Use
  Company Number: DE-ACTELION-A-CH2012-68737

PATIENT
  Sex: Male

DRUGS (3)
  1. TRACLEER [Suspect]
     Indication: PULMONARY ARTERIAL HYPERTENSION
     Dosage: UNK , UNK
     Route: 048
  2. ILOPROST [Concomitant]
     Indication: PULMONARY ARTERIAL HYPERTENSION
  3. SILDENAFIL [Concomitant]

REACTIONS (1)
  - DEATH [None]
